FAERS Safety Report 6878757-X (Version None)
Quarter: 2010Q3

REPORT INFORMATION
  Report Type: 
  Country: None (occurrence: None)
  Receive Date: 20100728
  Receipt Date: 20100714
  Transmission Date: 20110219
  Serious: Yes (Disabling)
  Sender: FDA-Public Use
  Company Number: BR-BAYER-201016882LA

PATIENT
  Age: 39 Year
  Sex: Female

DRUGS (3)
  1. BETAFERON [Suspect]
     Indication: MULTIPLE SCLEROSIS
     Route: 058
     Dates: start: 20070101
  2. AMITRIPTYLINE HYDROCHLORIDE [Concomitant]
     Indication: SLEEP DISORDER THERAPY
     Dosage: AS USED: 3 DF
     Route: 048
     Dates: start: 20070101
  3. LORAZEPAM [Concomitant]
     Indication: SLEEP DISORDER THERAPY
     Dosage: TOTAL DAILY DOSE: 1 DF
     Route: 048
     Dates: start: 20090701

REACTIONS (1)
  - ATROPHY [None]
